FAERS Safety Report 6238108-0 (Version None)
Quarter: 2009Q2

REPORT INFORMATION
  Report Type: 
  Country: None (occurrence: None)
  Receive Date: 20090617
  Receipt Date: 20090608
  Transmission Date: 20091009
  Serious: Yes (Other)
  Sender: FDA-Public Use
  Company Number: ADR3622009

PATIENT
  Sex: Male

DRUGS (2)
  1. PRAVASTATIN (MFR: UNKNOWN) [Suspect]
     Indication: HYPERLIPIDAEMIA
     Dosage: 10 MG, 1 DAY, ORAL
     Route: 048
     Dates: start: 20080301, end: 20080401
  2. FENOFIBRAT 100 MG [Concomitant]

REACTIONS (2)
  - BLOOD CREATINE PHOSPHOKINASE INCREASED [None]
  - MUSCULOSKELETAL DISCOMFORT [None]
